FAERS Safety Report 7636973-3 (Version None)
Quarter: 2011Q3

REPORT INFORMATION
  Report Type: 
  Country: None (occurrence: None)
  Receive Date: 20110726
  Receipt Date: 20110715
  Transmission Date: 20111222
  Serious: Yes (Other)
  Sender: FDA-Public Use
  Company Number: FR-JNJFOC-20110411661

PATIENT
  Age: 39 Year
  Sex: Female
  Weight: 80 kg

DRUGS (4)
  1. REMICADE [Suspect]
     Route: 042
  2. REMICADE [Suspect]
     Dosage: 13 INFUSIONS
     Route: 042
     Dates: start: 20110201, end: 20110221
  3. TEMAZEPAM [Concomitant]
     Indication: SCIATICA
     Route: 048
     Dates: start: 20100801, end: 20101101
  4. REMICADE [Suspect]
     Indication: CROHN'S DISEASE
     Route: 042
     Dates: start: 20101201

REACTIONS (1)
  - MEMORY IMPAIRMENT [None]
